FAERS Safety Report 7389437-9 (Version None)
Quarter: 2011Q2

REPORT INFORMATION
  Report Type: 
  Country: None (occurrence: None)
  Receive Date: 20110401
  Receipt Date: 20110321
  Transmission Date: 20111010
  Serious: Yes (Other)
  Sender: FDA-Public Use
  Company Number: US-SANOFI-AVENTIS-2011SA017399

PATIENT
  Age: 68 Year
  Sex: Male

DRUGS (4)
  1. MULTAQ [Suspect]
     Indication: ATRIAL FIBRILLATION
     Route: 048
     Dates: start: 20110319, end: 20110322
  2. LISINOPRIL [Concomitant]
  3. COUMADIN [Concomitant]
  4. METOPROLOL [Concomitant]

REACTIONS (2)
  - HEART RATE INCREASED [None]
  - ATRIAL FIBRILLATION [None]
